FAERS Safety Report 5673042-6 (Version None)
Quarter: 2008Q1

REPORT INFORMATION
  Report Type: 
  Country: None (occurrence: None)
  Receive Date: 20080319
  Receipt Date: 20080128
  Transmission Date: 20080703
  Serious: No
  Sender: FDA-Public Use
  Company Number: US-ASTRAZENECA-2008UW01936

PATIENT
  Age: 80 Year
  Sex: Female
  Weight: 63.5 kg

DRUGS (6)
  1. SYMBICORT [Suspect]
     Indication: ASTHMA
     Dosage: 80/4.5 TWO INHALATIONS TWICE A DAY
     Route: 055
     Dates: start: 20080101
  2. SYMBICORT [Suspect]
     Dosage: 80/4.5 ONE INHALATION ONCE A DAY
     Route: 055
  3. SYMBICORT [Suspect]
     Dosage: 80/4.5 ONE INHALATION TWICE A DAY
     Route: 055
  4. TIAZAC [Concomitant]
  5. ACCOLATE [Concomitant]
  6. CLARITIN [Concomitant]

REACTIONS (6)
  - DRY EYE [None]
  - DYSPHONIA [None]
  - FEELING ABNORMAL [None]
  - HEADACHE [None]
  - NASAL CONGESTION [None]
  - SNEEZING [None]
